FAERS Safety Report 14287944 (Version 2)
Quarter: 2018Q1

REPORT INFORMATION
  Report Type: Spontaneous
  Country: US (occurrence: US)
  Receive Date: 20171214
  Receipt Date: 20180110
  Transmission Date: 20180509
  Serious: No
  Sender: FDA-Public Use
  Company Number: US-PFIZER INC-2017534730

PATIENT
  Sex: Female

DRUGS (1)
  1. ZOLOFT [Suspect]
     Active Substance: SERTRALINE HYDROCHLORIDE
     Dosage: UNK, 1X/DAY [100S, ONCE A DAY]

REACTIONS (5)
  - Dizziness [Unknown]
  - Vertigo [Unknown]
  - Visual impairment [Unknown]
  - Syncope [Unknown]
  - Migraine [Unknown]
